FAERS Safety Report 4825330-0 (Version None)
Quarter: 2005Q4

REPORT INFORMATION
  Report Type: 
  Country: None (occurrence: None)
  Receive Date: 20051111
  Receipt Date: 20051101
  Transmission Date: 20060501
  Serious: Yes (Disabling)
  Sender: FDA-Public Use
  Company Number: PHHO2005JP17657

PATIENT
  Age: 56 Year
  Sex: Female
  Weight: 54 kg

DRUGS (9)
  1. LOCHOL [Suspect]
     Indication: HYPERCHOLESTEROLAEMIA
     Dosage: 20 MG, QD
     Route: 048
     Dates: start: 20001122, end: 20040120
  2. LOCHOL [Suspect]
     Dosage: 30 MG, QD
     Route: 048
     Dates: start: 20040421
  3. CONIEL [Concomitant]
     Indication: HYPERTENSION
     Dates: start: 20001025, end: 20040119
  4. EUGLUCON [Concomitant]
     Indication: DIABETES MELLITUS
     Dates: start: 20001025
  5. THYRADIN [Concomitant]
     Indication: THYROIDITIS CHRONIC
     Dates: start: 20001025
  6. UNIPHYL [Concomitant]
     Indication: ASTHMA
     Dates: start: 20001122
  7. PAXIL [Concomitant]
     Indication: NEUROSIS
     Dates: start: 20010606
  8. MICARDIS [Concomitant]
     Indication: HYPERTENSION
     Dates: start: 20040120
  9. NORVASC [Concomitant]
     Indication: HYPERTENSION
     Dates: start: 20050216

REACTIONS (3)
  - BRAIN STEM INFARCTION [None]
  - DYSARTHRIA [None]
  - HEMIPARESIS [None]
